FAERS Safety Report 21348804 (Version 1)
Quarter: 2022Q3

REPORT INFORMATION
  Report Type: Spontaneous
  Country: US (occurrence: US)
  Receive Date: 20220919
  Receipt Date: 20220919
  Transmission Date: 20221026
  Serious: Yes (Hospitalization, Other)
  Sender: FDA-Public Use
  Company Number: US-BRISTOL-MYERS SQUIBB COMPANY-2022-107157

PATIENT
  Age: 49 Year
  Sex: Female

DRUGS (1)
  1. REVLIMID [Suspect]
     Active Substance: LENALIDOMIDE
     Indication: Plasma cell myeloma
     Dosage: FOR 14 DAYS ON AND 7 DAYS OFF
     Route: 048
     Dates: start: 202202

REACTIONS (2)
  - Pericardial effusion [Unknown]
  - Off label use [Unknown]

NARRATIVE: CASE EVENT DATE: 20220101
